FAERS Safety Report 17487805 (Version 1)
Quarter: 2020Q1

REPORT INFORMATION
  Report Type: Spontaneous
  Country: FR (occurrence: FR)
  Receive Date: 20200303
  Receipt Date: 20200303
  Transmission Date: 20200409
  Serious: Yes (Death)
  Sender: FDA-Public Use
  Company Number: FR-PFIZER INC-2020090145

PATIENT
  Age: 53 Year
  Sex: Male

DRUGS (6)
  1. ALCOHOL. [Suspect]
     Active Substance: ALCOHOL
     Dosage: UNK
     Dates: end: 201906
  2. VENLAFAXINE HCL [Suspect]
     Active Substance: VENLAFAXINE HYDROCHLORIDE
     Dosage: UNK
     Dates: end: 201906
  3. MORPHINE [Suspect]
     Active Substance: MORPHINE
     Dosage: UNK
     Dates: end: 201906
  4. CODEINE [Suspect]
     Active Substance: CODEINE
     Dosage: UNK
     Dates: end: 201906
  5. ZOPICLONE [Suspect]
     Active Substance: ZOPICLONE
     Dosage: UNK
     Dates: end: 201906
  6. METHADONE AP HP [Suspect]
     Active Substance: METHADONE HYDROCHLORIDE
     Dosage: UNK
     Dates: end: 201906

REACTIONS (2)
  - Drug abuse [Fatal]
  - Respiratory depression [Fatal]

NARRATIVE: CASE EVENT DATE: 201906
